FAERS Safety Report 7790451-X (Version None)
Quarter: 2011Q3

REPORT INFORMATION
  Report Type: 
  Country: None (occurrence: None)
  Receive Date: 20110930
  Receipt Date: 20110921
  Transmission Date: 20111222
  Serious: Yes (Other)
  Sender: FDA-Public Use
  Company Number: CA-JNJFOC-20110801236

PATIENT
  Sex: Female
  Weight: 52 kg

DRUGS (7)
  1. REMICADE [Suspect]
     Indication: CROHN'S DISEASE
     Route: 042
  2. REMICADE [Suspect]
     Route: 042
     Dates: start: 20090601
  3. REMICADE [Suspect]
     Route: 042
     Dates: start: 20090601
  4. REMICADE [Suspect]
     Indication: RHEUMATOID ARTHRITIS
     Route: 042
  5. MORPHINE [Concomitant]
  6. PREDNISONE [Concomitant]
  7. METHOTREXATE [Concomitant]
     Route: 058

REACTIONS (5)
  - PERIARTHRITIS [None]
  - SWELLING [None]
  - HYPOKINESIA [None]
  - MOBILITY DECREASED [None]
  - ARTHRALGIA [None]
